FAERS Safety Report 4439052-1 (Version None)
Quarter: 2004Q3

REPORT INFORMATION
  Report Type: 
  Country: None (occurrence: None)
  Receive Date: 20040901
  Receipt Date: 20040823
  Transmission Date: 20050211
  Serious: Yes (Other)
  Sender: FDA-Public Use
  Company Number: US-GLAXOSMITHKLINE-A0523339A

PATIENT
  Sex: Male

DRUGS (1)
  1. PAXIL [Suspect]
     Indication: DRUG USE FOR UNKNOWN INDICATION
     Route: 048

REACTIONS (11)
  - ANXIETY [None]
  - CONFUSIONAL STATE [None]
  - DELIRIUM [None]
  - DRUG WITHDRAWAL SYNDROME [None]
  - ERECTILE DYSFUNCTION [None]
  - MUSCLE SPASMS [None]
  - NAUSEA [None]
  - SLEEP DISORDER [None]
  - SUICIDAL IDEATION [None]
  - THINKING ABNORMAL [None]
  - TREMOR [None]
